FAERS Safety Report 15844685 (Version 1)
Quarter: 2019Q1

REPORT INFORMATION
  Report Type: Other
  Country: PT (occurrence: PT)
  Receive Date: 20190118
  Receipt Date: 20190118
  Transmission Date: 20190417
  Serious: Yes (Hospitalization)
  Sender: FDA-Public Use
  Company Number: PT-NOSTRUM LABORATORIES, INC.-2061472

PATIENT
  Age: 86 Year
  Sex: Male

DRUGS (1)
  1. ACETAZOLAMIDE EXTENDED-RELEASE [Suspect]
     Active Substance: ACETAZOLAMIDE
     Indication: GLAUCOMA
     Route: 048

REACTIONS (4)
  - Ataxia [Recovered/Resolved]
  - Dysarthria [Recovered/Resolved]
  - Dysmetria [Recovered/Resolved]
  - Confusional state [Recovered/Resolved]
